FAERS Safety Report 11438693 (Version 1)
Quarter: 2015Q3

REPORT INFORMATION
  Report Type: Spontaneous
  Country: US (occurrence: US)
  Receive Date: 20150901
  Receipt Date: 20150901
  Transmission Date: 20151125
  Serious: No
  Sender: FDA-Public Use
  Company Number: US-ROCHE-1092617

PATIENT
  Sex: Male

DRUGS (2)
  1. COPEGUS [Suspect]
     Active Substance: RIBAVIRIN
     Indication: CHRONIC HEPATITIS C
     Dosage: DIVIDED DOSE
     Route: 048
     Dates: start: 20120719
  2. PEGASYS [Suspect]
     Active Substance: PEGINTERFERON ALFA-2A
     Indication: CHRONIC HEPATITIS C
     Route: 058
     Dates: start: 20120719

REACTIONS (8)
  - Feeling abnormal [Unknown]
  - Injection site erythema [Unknown]
  - Pyrexia [Unknown]
  - Cough [Unknown]
  - Oral mucosal blistering [Unknown]
  - Palpitations [Unknown]
  - Dyspnoea [Unknown]
  - Hyperhidrosis [Unknown]
